FAERS Safety Report 22203291 (Version 4)
Quarter: 2023Q2

REPORT INFORMATION
  Report Type: Report from Study
  Country: US (occurrence: US)
  Receive Date: 20230412
  Receipt Date: 20230619
  Transmission Date: 20230721
  Serious: Yes (Other)
  Sender: FDA-Public Use
  Company Number: US-ABBVIE-4724989

PATIENT
  Age: 60 Year
  Sex: Female
  Weight: 82.553 kg

DRUGS (4)
  1. SKYRIZI [Suspect]
     Active Substance: RISANKIZUMAB-RZAA
     Indication: Osteoarthritis
     Dosage: STRENGTH: 150 MILLIGRAM
     Route: 058
     Dates: start: 20221003
  2. SKYRIZI [Suspect]
     Active Substance: RISANKIZUMAB-RZAA
     Indication: Psoriatic arthropathy
     Dosage: STRENGTH: 150 MILLIGRAM
     Route: 058
     Dates: start: 20230404, end: 20230404
  3. SKYRIZI [Suspect]
     Active Substance: RISANKIZUMAB-RZAA
     Dosage: STRENGTH: 150 MILLIGRAM
     Route: 058
  4. METHOTREXATE [Concomitant]
     Active Substance: METHOTREXATE
     Indication: Psoriatic arthropathy

REACTIONS (5)
  - Surgery [Unknown]
  - Pain [Not Recovered/Not Resolved]
  - Off label use [Unknown]
  - Device issue [Recovered/Resolved]
  - Device issue [Recovered/Resolved with Sequelae]

NARRATIVE: CASE EVENT DATE: 20230228
